FAERS Safety Report 4884416-5 (Version None)
Quarter: 2006Q1

REPORT INFORMATION
  Report Type: 
  Country: None (occurrence: None)
  Receive Date: 20060117
  Receipt Date: 20060106
  Transmission Date: 20060701
  Serious: Yes (Hospitalization, Other)
  Sender: FDA-Public Use
  Company Number: KII-2006-0020644

PATIENT
  Age: 26 Year
  Sex: Female

DRUGS (2)
  1. OXYCODONE HCL [Suspect]
     Indication: INTENTIONAL DRUG MISUSE
     Dosage: ORAL
     Route: 048
  2. METHADONE HCL [Suspect]
     Indication: INTENTIONAL DRUG MISUSE
     Dosage: ORAL
     Route: 048

REACTIONS (2)
  - MENTAL STATUS CHANGES [None]
  - POLYSUBSTANCE ABUSE [None]
